FAERS Safety Report 9162463 (Version 1)
Quarter: 2013Q1

REPORT INFORMATION
  Report Type: Spontaneous
  Country: US (occurrence: None)
  Receive Date: 20130221
  Receipt Date: 20130221
  Transmission Date: 20140127
  Serious: Yes (Hospitalization, Other)
  Sender: FDA-Public Use
  Company Number: 2013PROUSA02527

PATIENT
  Age: 76 Year
  Sex: Male

DRUGS (8)
  1. PROVENGE (SIPULEUCEL-T) SUSPENSION, 250ML [Suspect]
     Indication: PROSTATE CANCER METASTATIC
  2. EULEXIN (FLUTAMIDE) [Concomitant]
  3. OMEPRAZOLE (OMEPRAZOLE) [Concomitant]
  4. VYTORIN (EZETIMIBE, SINVASTATIN) [Concomitant]
  5. RENVELA (SEVELAMER CARBONATE) [Concomitant]
  6. ZOFRAN (ONDANSETRON HYDROCHLORIDE) [Concomitant]
  7. OSCAL (CALCITRIOL) [Concomitant]
  8. PERCOCET [Concomitant]

REACTIONS (2)
  - Gastroenteritis [None]
  - Cholelithiasis [None]
